FAERS Safety Report 9370833 (Version 1)
Quarter: 2013Q2

REPORT INFORMATION
  Report Type: Spontaneous
  Country: US (occurrence: US)
  Receive Date: 20130626
  Receipt Date: 20130626
  Transmission Date: 20140414
  Serious: No
  Sender: FDA-Public Use
  Company Number: US-009507513-1306USA006684

PATIENT
  Sex: Female

DRUGS (3)
  1. ZIOPTAN [Suspect]
     Indication: INTRAOCULAR PRESSURE TEST ABNORMAL
     Dosage: 1 DROP INTO AFFECTED EYE ONCE IN THE EVENING
     Route: 047
  2. ZIOPTAN [Suspect]
     Indication: GLAUCOMA
  3. THERAPY UNSPECIFIED [Suspect]
     Indication: GLAUCOMA
     Route: 047

REACTIONS (1)
  - Intraocular pressure increased [Unknown]
